FAERS Safety Report 7785077-8 (Version None)
Quarter: 2011Q3

REPORT INFORMATION
  Report Type: 
  Country: None (occurrence: None)
  Receive Date: 20110929
  Receipt Date: 20110920
  Transmission Date: 20111222
  Serious: Yes (Hospitalization)
  Sender: FDA-Public Use
  Company Number: US-BIOGENIDEC-2011BI036270

PATIENT
  Age: 35 Year
  Sex: Female

DRUGS (2)
  1. AVONEX [Suspect]
     Indication: MULTIPLE SCLEROSIS
     Route: 030
     Dates: start: 20060331, end: 20090901
  2. AVONEX [Suspect]
     Route: 030
     Dates: start: 20110520

REACTIONS (4)
  - CAESAREAN SECTION [None]
  - POSTOPERATIVE WOUND INFECTION [None]
  - GESTATIONAL HYPERTENSION [None]
  - GESTATIONAL DIABETES [None]
